FAERS Safety Report 7769462-6 (Version None)
Quarter: 2011Q3

REPORT INFORMATION
  Report Type: 
  Country: None (occurrence: None)
  Receive Date: 20110922
  Receipt Date: 20110719
  Transmission Date: 20111222
  Serious: Yes (Other)
  Sender: FDA-Public Use
  Company Number: US-ASTRAZENECA-2011SE34175

PATIENT
  Sex: Male

DRUGS (2)
  1. SEROQUEL [Suspect]
     Indication: ANXIETY
     Dosage: 25 MG TO 50 MG
     Route: 048
     Dates: start: 20000101, end: 20010101
  2. SEROQUEL [Suspect]
     Indication: INSOMNIA
     Dosage: 25 MG TO 50 MG
     Route: 048
     Dates: start: 20000101, end: 20010101

REACTIONS (1)
  - TARDIVE DYSKINESIA [None]
